FAERS Safety Report 25254855 (Version 1)
Quarter: 2025Q2

REPORT INFORMATION
  Report Type: Spontaneous
  Country: US (occurrence: US)
  Receive Date: 20250430
  Receipt Date: 20250430
  Transmission Date: 20250717
  Serious: Yes (Other)
  Sender: MYLAN
  Company Number: US-MYLANLABS-2025M1036724

PATIENT
  Age: 45 Year
  Sex: Male

DRUGS (3)
  1. BUDESONIDE [Suspect]
     Active Substance: BUDESONIDE
     Indication: Congenital hepatic fibrosis
  2. OBETICHOLIC ACID [Suspect]
     Active Substance: OBETICHOLIC ACID
     Indication: Congenital hepatic fibrosis
  3. URSODIOL [Concomitant]
     Active Substance: URSODIOL
     Indication: Congenital hepatic fibrosis

REACTIONS (1)
  - Drug ineffective [Unknown]
